FAERS Safety Report 8268292-9 (Version None)
Quarter: 2012Q1

REPORT INFORMATION
  Report Type: 
  Country: None (occurrence: None)
  Receive Date: 20120327
  Receipt Date: 20100402
  Transmission Date: 20120608
  Serious: Yes (Hospitalization)
  Sender: FDA-Public Use
  Company Number: PHHY2010US20807

PATIENT
  Age: 73 Year
  Sex: Male

DRUGS (1)
  1. GLEEVEC [Suspect]
     Indication: CHRONIC MYELOID LEUKAEMIA
     Dosage: 600 MG, QD, ORAL
     Route: 048
     Dates: start: 20100201

REACTIONS (4)
  - PNEUMONIA [None]
  - PYREXIA [None]
  - HEART RATE IRREGULAR [None]
  - BLOOD PRESSURE DECREASED [None]
